FAERS Safety Report 9235616 (Version 1)
Quarter: 2013Q2

REPORT INFORMATION
  Report Type: Spontaneous
  Country: US (occurrence: US)
  Receive Date: 20130417
  Receipt Date: 20130417
  Transmission Date: 20140414
  Serious: Yes (Hospitalization)
  Sender: FDA-Public Use
  Company Number: US-ELI_LILLY_AND_COMPANY-US201304002783

PATIENT
  Age: 68 Year
  Sex: Female

DRUGS (1)
  1. FORTEO [Suspect]
     Indication: OSTEOPOROSIS
     Dosage: UNK, QD
     Route: 065
     Dates: start: 20130213

REACTIONS (6)
  - Greenstick fracture [Unknown]
  - Tendon disorder [Unknown]
  - Pain [Unknown]
  - Fall [Unknown]
  - Ligament sprain [Unknown]
  - Discomfort [Unknown]
